FAERS Safety Report 8562326 (Version 3)
Quarter: 2015Q1

REPORT INFORMATION
  Report Type: Spontaneous
  Country: US (occurrence: US)
  Receive Date: 20120515
  Receipt Date: 20150302
  Transmission Date: 20150721
  Serious: Yes (Hospitalization, Other)
  Sender: FDA-Public Use
  Company Number: US-BAYER-2012-045707

PATIENT
  Age: 32 Year
  Sex: Female
  Weight: 75.74 kg

DRUGS (3)
  1. ALBUTEROL. [Concomitant]
     Active Substance: ALBUTEROL
     Indication: ASTHMA
  2. YASMIN [Suspect]
     Active Substance: DROSPIRENONE\ETHINYL ESTRADIOL
  3. YAZ [Suspect]
     Active Substance: DROSPIRENONE\ETHINYL ESTRADIOL

REACTIONS (11)
  - Emotional distress [None]
  - Anhedonia [None]
  - Fear [None]
  - Anxiety [None]
  - Kidney infection [None]
  - Pulmonary embolism [Recovered/Resolved]
  - Injury [Recovered/Resolved]
  - Quality of life decreased [Recovered/Resolved]
  - Transient ischaemic attack [None]
  - Endometriosis [None]
  - Pain [Recovered/Resolved]

NARRATIVE: CASE EVENT DATE: 2011
